FAERS Safety Report 6129885-8 (Version None)
Quarter: 2009Q1

REPORT INFORMATION
  Report Type: 
  Country: None (occurrence: None)
  Receive Date: 20090324
  Receipt Date: 20090310
  Transmission Date: 20090719
  Serious: Yes (Other)
  Sender: FDA-Public Use
  Company Number: US-PFIZER INC-2006049394

PATIENT
  Sex: Female

DRUGS (9)
  1. PROVERA [Suspect]
     Indication: HORMONE REPLACEMENT THERAPY
     Dosage: UNK
     Route: 048
     Dates: start: 19910101, end: 19940101
  2. PROVERA [Suspect]
     Indication: OSTEOPOROSIS
  3. PREMARIN [Suspect]
     Indication: HORMONE REPLACEMENT THERAPY
     Dosage: UNK
     Dates: start: 19910101, end: 19940101
  4. PREMARIN [Suspect]
     Indication: OSTEOPOROSIS
  5. ESTRACE [Suspect]
     Indication: HORMONE REPLACEMENT THERAPY
     Dosage: UNK
     Dates: start: 19940101, end: 19980101
  6. ESTRACE [Suspect]
     Indication: OSTEOPOROSIS
  7. AYGESTIN [Suspect]
     Indication: HORMONE REPLACEMENT THERAPY
     Dosage: UNK
     Dates: start: 19960101, end: 20000101
  8. AYGESTIN [Suspect]
     Indication: OSTEOPOROSIS
  9. EVISTA [Suspect]
     Dosage: UNK
     Dates: start: 19980101, end: 20000101

REACTIONS (1)
  - BREAST CANCER FEMALE [None]
